FAERS Safety Report 4499079-0 (Version None)
Quarter: 2004Q4

REPORT INFORMATION
  Report Type: 
  Country: None (occurrence: None)
  Receive Date: 20041108
  Receipt Date: 20041027
  Transmission Date: 20050328
  Serious: No
  Sender: FDA-Public Use
  Company Number: 2004-121744-NL

PATIENT
  Age: 47 Year
  Sex: Female

DRUGS (3)
  1. MIRTAZAPINE [Suspect]
  2. PAROXETINE HYDROCHLORIDE [Suspect]
  3. VENLAFAXINE HYDROCHLORIDE [Concomitant]

REACTIONS (4)
  - HYPERSENSITIVITY [None]
  - HYPERTENSION [None]
  - OEDEMA PERIPHERAL [None]
  - WEIGHT INCREASED [None]
